FAERS Safety Report 14823431 (Version 5)
Quarter: 2018Q4

REPORT INFORMATION
  Report Type: Report from Study
  Country: FR (occurrence: FR)
  Receive Date: 20180427
  Receipt Date: 20181011
  Transmission Date: 20190204
  Serious: Yes (Hospitalization, Other)
  Sender: FDA-Public Use
  Company Number: FR-ROCHE-2114715

PATIENT
  Age: 65 Year
  Sex: Male
  Weight: 66 kg

DRUGS (5)
  1. OBINUTUZUMAB. [Suspect]
     Active Substance: OBINUTUZUMAB
     Indication: WALDENSTROM^S MACROGLOBULINAEMIA
     Dosage: 28/MAR/2018 (D1C1) TO 29/MAR/2018 (D2C1)WHEN DOSE INTERRUPTED
     Route: 041
     Dates: start: 20180328, end: 20180329
  2. OBINUTUZUMAB. [Suspect]
     Active Substance: OBINUTUZUMAB
     Route: 042
     Dates: start: 20180425, end: 20180425
  3. OBINUTUZUMAB. [Suspect]
     Active Substance: OBINUTUZUMAB
     Dosage: EVERY 1 CYCLE?LAST DOSE PRIOR TO SAE
     Route: 041
     Dates: start: 20180523, end: 20180523
  4. IDELALISIB [Suspect]
     Active Substance: IDELALISIB
     Dosage: IDELALISIB WAS WITHDRAWN
     Route: 048
     Dates: start: 20180425, end: 20180523
  5. IDELALISIB [Suspect]
     Active Substance: IDELALISIB
     Indication: WALDENSTROM^S MACROGLOBULINAEMIA
     Dosage: DOSE INTERRUPTED 12/APR/2018
     Route: 048
     Dates: start: 20180328, end: 20180412

REACTIONS (3)
  - Lymphopenia [Recovered/Resolved]
  - Haemophagocytic lymphohistiocytosis [Recovering/Resolving]
  - Febrile neutropenia [Recovered/Resolved]

NARRATIVE: CASE EVENT DATE: 20180411
